FAERS Safety Report 9352716 (Version 2)
Quarter: 2013Q3

REPORT INFORMATION
  Report Type: Spontaneous
  Country: US (occurrence: US)
  Receive Date: 20130618
  Receipt Date: 20130923
  Transmission Date: 20140515
  Serious: Yes (Hospitalization)
  Sender: FDA-Public Use
  Company Number: US-009507513-1306USA004521

PATIENT
  Age: 47 Year
  Sex: Male

DRUGS (2)
  1. HEXADROL TABLETS [Suspect]
     Dosage: 4-6 MG, Q6H
     Route: 048
  2. INSULIN [Suspect]
     Dosage: RANGE BETWEEN 3 AND 7.5U/H
     Route: 042

REACTIONS (2)
  - Hypernatraemia [Unknown]
  - Hyperosmolar state [Unknown]
